FAERS Safety Report 6251549-0 (Version None)
Quarter: 2009Q2

REPORT INFORMATION
  Report Type: 
  Country: None (occurrence: None)
  Receive Date: 20090630
  Receipt Date: 20090626
  Transmission Date: 20091009
  Serious: Yes (Other)
  Sender: FDA-Public Use
  Company Number: ES-WATSON-2009-04938

PATIENT
  Age: 65 Year
  Sex: Male

DRUGS (3)
  1. FLUOROURACIL [Suspect]
     Indication: GASTRIC CANCER
     Dosage: 200 MG/M2, DAILY
     Route: 042
  2. CISPLATIN [Suspect]
     Indication: GASTRIC CANCER
     Dosage: 60 MG/M2, DAY 1
     Route: 042
  3. EPIRUBICIN [Concomitant]
     Indication: GASTRIC CANCER

REACTIONS (1)
  - CEREBRAL INFARCTION [None]
